FAERS Safety Report 8343017-7 (Version None)
Quarter: 2012Q2

REPORT INFORMATION
  Report Type: 
  Country: None (occurrence: None)
  Receive Date: 20120508
  Receipt Date: 20120501
  Transmission Date: 20120825
  Serious: Yes (Disabling, Other)
  Sender: FDA-Public Use
  Company Number: PHHY2011CA21707

PATIENT
  Sex: Female

DRUGS (10)
  1. ADVAIR DISKUS 100/50 [Concomitant]
  2. TOPIRAMATE [Concomitant]
  3. WARFARIN SODIUM [Concomitant]
  4. ZOLEDRONOC ACID [Suspect]
     Dosage: UNK UKN, UNK
     Route: 042
     Dates: start: 20110509
  5. PANTOPRAZOLE [Concomitant]
  6. MIRTAZAPINE [Concomitant]
  7. CRESTOR [Concomitant]
     Dosage: 10 MG, UNK
  8. ZOLEDRONOC ACID [Suspect]
     Dosage: UNK UKN, UNK
     Route: 042
     Dates: start: 20100420
  9. ZOLEDRONOC ACID [Suspect]
     Indication: OSTEOPOROSIS
     Dosage: UNK UKN, UNK
     Route: 042
     Dates: start: 20080505
  10. ZOLEDRONOC ACID [Suspect]
     Dosage: UNK UKN, UNK
     Route: 042
     Dates: start: 20090424

REACTIONS (7)
  - JOINT SWELLING [None]
  - OSTEOARTHRITIS [None]
  - OEDEMA PERIPHERAL [None]
  - MOBILITY DECREASED [None]
  - HIP FRACTURE [None]
  - ARTHRALGIA [None]
  - FALL [None]
